FAERS Safety Report 15434972 (Version 2)
Quarter: 2018Q3

REPORT INFORMATION
  Report Type: Spontaneous
  Country: US (occurrence: US)
  Receive Date: 20180927
  Receipt Date: 20180928
  Transmission Date: 20181010
  Serious: No
  Sender: FDA-Public Use
  Company Number: US-SA-2018SA266641

PATIENT
  Age: 53 Year
  Sex: Male

DRUGS (2)
  1. ALIROCUMAB PREFILLED PEN [Suspect]
     Active Substance: ALIROCUMAB
     Indication: TYPE IIA HYPERLIPIDAEMIA
     Dosage: 75 MG, QOW
     Route: 058
     Dates: start: 201806
  2. PRALUENT [Suspect]
     Active Substance: ALIROCUMAB
     Indication: TYPE IIA HYPERLIPIDAEMIA
     Dosage: UNK, QOW
     Route: 058
     Dates: start: 201806

REACTIONS (7)
  - Erysipelas [Unknown]
  - Nasal crusting [Unknown]
  - Exfoliative rash [Unknown]
  - Airway peak pressure [Unknown]
  - Swelling face [Unknown]
  - Rhinorrhoea [Unknown]
  - Bacterial disease carrier [Unknown]
